FAERS Safety Report 4668025-9 (Version None)
Quarter: 2005Q2

REPORT INFORMATION
  Report Type: 
  Country: None (occurrence: None)
  Receive Date: 20050520
  Receipt Date: 20050429
  Transmission Date: 20051028
  Serious: No
  Sender: FDA-Public Use
  Company Number: US-MERCK-0505USA00075

PATIENT
  Sex: Female

DRUGS (6)
  1. SINGULAIR [Suspect]
     Indication: RHINITIS ALLERGIC
     Route: 048
     Dates: start: 20040430, end: 20040624
  2. SINGULAIR [Suspect]
     Indication: HYPERSENSITIVITY
     Route: 048
     Dates: start: 20040430, end: 20040624
  3. CLARINEX [Concomitant]
     Route: 065
  4. RHINOCORT [Concomitant]
     Route: 065
  5. GUAIFENESIN [Concomitant]
     Route: 065
  6. ALLERGENIC EXTRACT [Concomitant]
     Route: 065
     Dates: start: 20010101

REACTIONS (1)
  - DRUG INEFFECTIVE [None]
